FAERS Safety Report 19512596 (Version 2)
Quarter: 2021Q3

REPORT INFORMATION
  Report Type: Spontaneous
  Country: US (occurrence: US)
  Receive Date: 20210709
  Receipt Date: 20210923
  Transmission Date: 20211014
  Serious: No
  Sender: FDA-Public Use
  Company Number: US-MILLICENT HOLDINGS LTD.-MILL20210681

PATIENT
  Age: 78 Year
  Sex: Female

DRUGS (3)
  1. INTRAROSA [Suspect]
     Active Substance: PRASTERONE
     Indication: VULVOVAGINAL DRYNESS
     Dosage: 6.5 MG
     Route: 067
     Dates: start: 20190702, end: 20200102
  2. INTRAROSA [Suspect]
     Active Substance: PRASTERONE
     Dosage: UNKNOWN
     Route: 067
     Dates: start: 2017
  3. INTRAROSA [Suspect]
     Active Substance: PRASTERONE
     Dosage: 3.25 MG
     Route: 067
     Dates: start: 20200102

REACTIONS (4)
  - Intentional underdose [Unknown]
  - Abdominal distension [Recovered/Resolved]
  - Off label use [Unknown]
  - Product packaging issue [Unknown]

NARRATIVE: CASE EVENT DATE: 2019
